FAERS Safety Report 5851514-9 (Version None)
Quarter: 2008Q3

REPORT INFORMATION
  Report Type: 
  Country: None (occurrence: None)
  Receive Date: 20080820
  Receipt Date: 20080811
  Transmission Date: 20090109
  Serious: Yes (Hospitalization)
  Sender: FDA-Public Use
  Company Number: CA-ELI_LILLY_AND_COMPANY-CA200808002297

PATIENT
  Sex: Female

DRUGS (2)
  1. CYMBALTA [Suspect]
     Dosage: 60 MG, UNK
  2. WELLBUTRIN [Concomitant]
     Dosage: 150 MG, EACH MORNING

REACTIONS (3)
  - FEELING ABNORMAL [None]
  - HOSPITALISATION [None]
  - HYPERTENSION [None]
